FAERS Safety Report 7634271-5 (Version None)
Quarter: 2011Q3

REPORT INFORMATION
  Report Type: 
  Country: None (occurrence: None)
  Receive Date: 20110725
  Receipt Date: 20110718
  Transmission Date: 20111222
  Serious: Yes (Life-Threatening, Hospitalization, Other)
  Sender: FDA-Public Use
  Company Number: US-BAYER-201010409NA

PATIENT
  Age: 18 Year
  Sex: Female
  Weight: 52.154 kg

DRUGS (16)
  1. FERROUS SULFATE TAB [Concomitant]
  2. YAZ [Suspect]
     Indication: PRODUCT USED FOR UNKNOWN INDICATION
     Dates: start: 20080601, end: 20081201
  3. UNCODEABLE ^UNCLASSIFIABLE^ [Concomitant]
  4. PAXIL [Concomitant]
  5. NESTAB [Concomitant]
  6. HYDROCODONE BITARTRATE AND ACETAMINOPHEN [Concomitant]
     Dosage: 500 MG, UNK
  7. FLOVENT [Concomitant]
  8. VICODIN [Concomitant]
  9. CEPHALEXIN [Concomitant]
     Dosage: 500 MG, UNK
     Dates: start: 20081106
  10. PROMETHAZINE [Concomitant]
  11. ALBUTEROL SULFATE AUTOHALER [Concomitant]
     Indication: ASTHMA
     Dosage: UNK
     Dates: start: 20010101
  12. CLARINEX [Concomitant]
  13. HYDROCODONE [HYDROCODONE] [Concomitant]
  14. CEPHALEXIN [Concomitant]
  15. PROMETHAZINE [Concomitant]
     Dosage: 50 MG, UNK
     Dates: start: 20081008
  16. ACETAMINOPHEN [Concomitant]

REACTIONS (3)
  - ORGAN FAILURE [None]
  - CHOLECYSTITIS CHRONIC [None]
  - GALLBLADDER NON-FUNCTIONING [None]
